FAERS Safety Report 20955684 (Version 1)
Quarter: 2022Q2

REPORT INFORMATION
  Report Type: Spontaneous
  Country: GB (occurrence: GB)
  Receive Date: 20220614
  Receipt Date: 20220614
  Transmission Date: 20220720
  Serious: Yes (Other)
  Sender: FDA-Public Use
  Company Number: None

PATIENT
  Age: 56 Year
  Sex: Male
  Weight: 102 kg

DRUGS (6)
  1. DOXYCYCLINE [Suspect]
     Active Substance: DOXYCYCLINE
     Indication: Ill-defined disorder
     Dosage: UNK
     Dates: start: 20220606
  2. AMOXICILLIN [Concomitant]
     Active Substance: AMOXICILLIN
     Indication: Ill-defined disorder
     Dosage: 1 DOSAGE FORM, TID (ONE CAPSULE TO BE TAKEN THREE TIMES A DAY FOR 7)
     Dates: start: 20220606
  3. BECLOMETHASONE DIPROPIONATE [Concomitant]
     Active Substance: BECLOMETHASONE DIPROPIONATE
     Indication: Ill-defined disorder
     Dosage: BID,(TWO PUFFS TO BE INHALED TWICE DAILY.)
     Dates: start: 20220531
  4. DOXYCYCLINE [Concomitant]
     Active Substance: DOXYCYCLINE
     Indication: Ill-defined disorder
     Dosage: TWO CAPSULES TO BE TAKEN IMMEDIATELY THEN ONE
     Dates: start: 20220531
  5. PENICILLIN V [Concomitant]
     Active Substance: PENICILLIN V
     Indication: Ill-defined disorder
     Dosage: 2 DOSAGE FORM, QID (TWO TABLETS TO BE TAKEN FOUR TIMES A DAY)
     Dates: start: 20220516, end: 20220521
  6. ALBUTEROL [Concomitant]
     Active Substance: ALBUTEROL
     Indication: Ill-defined disorder
     Dosage: PRN (INHALE 2 DOSES 4 HOURLY AS NEEDED)
     Dates: start: 20220530

REACTIONS (2)
  - Abnormal sleep-related event [Recovering/Resolving]
  - Nausea [Recovered/Resolved]

NARRATIVE: CASE EVENT DATE: 20220606
